FAERS Safety Report 7626083-3 (Version None)
Quarter: 2011Q3

REPORT INFORMATION
  Report Type: 
  Country: None (occurrence: None)
  Receive Date: 20110721
  Receipt Date: 20110713
  Transmission Date: 20111222
  Serious: Yes (Hospitalization)
  Sender: FDA-Public Use
  Company Number: US-BAYER-201033813NA

PATIENT
  Age: 25 Year
  Sex: Female
  Weight: 172 kg

DRUGS (28)
  1. BALZIVA [Concomitant]
  2. FLONASE [Concomitant]
     Dosage: 2 SPRAYS/EVERY DAY
     Route: 045
     Dates: start: 20080303
  3. LOVENOX [Concomitant]
  4. FERROUS SULFATE TAB [Concomitant]
  5. ASPIRIN [Concomitant]
     Dosage: 325 MG, UNK
  6. KLONOPIN [Concomitant]
  7. MEGACE [Concomitant]
     Indication: VAGINAL HAEMORRHAGE
     Dosage: 40 MG, UNK
  8. PROVERA [Concomitant]
     Indication: VAGINAL HAEMORRHAGE
  9. ROCEPHIN [Concomitant]
  10. COLACE [Concomitant]
  11. ASPIRIN [Concomitant]
     Dosage: EVERY DAY
     Route: 048
     Dates: start: 20080303
  12. FLUTICASONE [Concomitant]
  13. LAXATIVES [Concomitant]
  14. PHENERGAN HCL [Concomitant]
  15. DARVOCET [Concomitant]
  16. TYLENOL-500 [Concomitant]
  17. LEXAPRO [Concomitant]
     Dosage: 10 MG, UNK
  18. PHENERGAN HCL [Concomitant]
  19. IRON SULFATETHIAMIN COMPOUND TAB [Concomitant]
     Indication: VAGINAL HAEMORRHAGE
     Dosage: EVERY DAY
     Route: 048
     Dates: start: 20080303
  20. DEPO-PROVERA [Concomitant]
  21. WHOLE BLOOD [Concomitant]
     Indication: ANAEMIA
  22. METFORMIN HCL [Concomitant]
     Dosage: 500 MG, UNK
     Dates: start: 20080303
  23. OVCON-35 [Concomitant]
     Indication: DYSFUNCTIONAL UTERINE BLEEDING
  24. YASMIN [Suspect]
     Indication: PRODUCT USED FOR UNKNOWN INDICATION
     Route: 048
     Dates: start: 20080201
  25. OVCON-35 [Concomitant]
     Indication: VAGINAL HAEMORRHAGE
     Dosage: UNK
     Dates: start: 20080303
  26. HUMIBID LA [Concomitant]
  27. ZITHROMAX [Concomitant]
  28. INSULIN [Concomitant]

REACTIONS (4)
  - THROMBOSIS [None]
  - PULMONARY EMBOLISM [None]
  - DEEP VEIN THROMBOSIS [None]
  - PAIN [None]
